FAERS Safety Report 8123057-3 (Version None)
Quarter: 2012Q1

REPORT INFORMATION
  Report Type: 
  Country: None (occurrence: None)
  Receive Date: 20120208
  Receipt Date: 20120206
  Transmission Date: 20120608
  Serious: No
  Sender: FDA-Public Use
  Company Number: US-PFIZER INC-2012032107

PATIENT
  Age: 70 Year
  Sex: Male
  Weight: 67.12 kg

DRUGS (3)
  1. AMOXICILLIN [Concomitant]
     Dosage: 125 MG, 2X/DAY
  2. IBUPROFEN (ADVIL) [Suspect]
     Indication: GINGIVITIS
  3. IBUPROFEN (ADVIL) [Suspect]
     Indication: PAIN
     Dosage: 800 MG, 3X/DAY
     Dates: start: 20120201

REACTIONS (3)
  - OVERDOSE [None]
  - INFLAMMATION [None]
  - ABDOMINAL DISCOMFORT [None]
